FAERS Safety Report 19192477 (Version 1)
Quarter: 2021Q2

REPORT INFORMATION
  Report Type: Spontaneous
  Country: US (occurrence: US)
  Receive Date: 20210428
  Receipt Date: 20210428
  Transmission Date: 20210717
  Serious: Yes (Other)
  Sender: FDA-Public Use
  Company Number: US-BRISTOL-MYERS SQUIBB COMPANY-BMS-2021-039605

PATIENT
  Age: 87 Year
  Sex: Male
  Weight: 77.11 kg

DRUGS (2)
  1. ELIQUIS [Suspect]
     Active Substance: APIXABAN
     Indication: DEEP VEIN THROMBOSIS
     Dosage: HALF A TABLET,
     Route: 048
     Dates: start: 20190830
  2. ELIQUIS [Suspect]
     Active Substance: APIXABAN
     Dosage: 5 MILLIGRAM, BID
     Route: 048
     Dates: start: 202010

REACTIONS (4)
  - Loss of consciousness [Unknown]
  - Feeling abnormal [Unknown]
  - Intentional product use issue [Unknown]
  - Dizziness [Unknown]
